FAERS Safety Report 13286912 (Version 1)
Quarter: 2017Q1

REPORT INFORMATION
  Report Type: Spontaneous
  Country: FR (occurrence: FR)
  Receive Date: 20170302
  Receipt Date: 20170302
  Transmission Date: 20170428
  Serious: Yes (Hospitalization, Other)
  Sender: FDA-Public Use
  Company Number: FR-INDIVIOR LIMITED-INDV-099241-2017

PATIENT
  Age: 50 Year
  Sex: Male

DRUGS (14)
  1. TRUVADA [Concomitant]
     Active Substance: EMTRICITABINE\TENOFOVIR DISOPROXIL FUMARATE
     Dosage: 200 MG + 245 MG:1 TABLET, EVENING
     Route: 048
     Dates: start: 2016
  2. DEROXAT [Concomitant]
     Active Substance: PAROXETINE HYDROCHLORIDE
     Indication: PRODUCT USED FOR UNKNOWN INDICATION
     Dosage: UNK
     Route: 065
  3. LEXOMIL [Concomitant]
     Active Substance: BROMAZEPAM
     Indication: PRODUCT USED FOR UNKNOWN INDICATION
     Dosage: 6MG (1/4-1/4-1/4)
     Route: 065
  4. INEXIUM                            /01479302/ [Concomitant]
     Active Substance: ESOMEPRAZOLE MAGNESIUM
     Dosage: 40MG, 1 TABLET EVENING FOR 1 MONTH
     Route: 048
     Dates: start: 2016
  5. LYRICA [Concomitant]
     Active Substance: PREGABALIN
     Dosage: 75 MG CAPSULES: 200 MG, MORNING NOON EVENINGUNK
     Route: 048
     Dates: start: 2016
  6. SUBUTEX [Suspect]
     Active Substance: BUPRENORPHINE HYDROCHLORIDE
     Dosage: 1 TABLET MORNING
     Route: 060
     Dates: start: 2016
  7. INEXIUM                            /01479302/ [Concomitant]
     Active Substance: ESOMEPRAZOLE MAGNESIUM
     Indication: PRODUCT USED FOR UNKNOWN INDICATION
     Dosage: 20MG IN THE EVENING
     Route: 065
  8. LYRICA [Concomitant]
     Active Substance: PREGABALIN
     Indication: PRODUCT USED FOR UNKNOWN INDICATION
     Dosage: 200MG, 1-1-1
     Route: 065
  9. SUBUTEX [Suspect]
     Active Substance: BUPRENORPHINE HYDROCHLORIDE
     Indication: PRODUCT USED FOR UNKNOWN INDICATION
     Dosage: 2MG/DAY
     Route: 065
  10. UVEDOSE [Concomitant]
     Active Substance: CHOLECALCIFEROL
     Indication: PRODUCT USED FOR UNKNOWN INDICATION
     Dosage: 100000 IU/MONTH
     Route: 065
     Dates: start: 2016
  11. TRUVADA [Concomitant]
     Active Substance: EMTRICITABINE\TENOFOVIR DISOPROXIL FUMARATE
     Indication: PRODUCT USED FOR UNKNOWN INDICATION
     Dosage: 200/245; 0-0-1
     Route: 065
  12. CANNABIS [Suspect]
     Active Substance: CANNABIS SATIVA SUBSP. INDICA TOP
     Indication: PRODUCT USED FOR UNKNOWN INDICATION
     Dosage: UNK
     Route: 042
     Dates: start: 1985, end: 2014
  13. LEXOMIL [Concomitant]
     Active Substance: BROMAZEPAM
     Dosage: 1.5 MG, 1 TABLET MORNING, NOON, EVENING
     Route: 048
     Dates: start: 2016
  14. FORTIMEL [Concomitant]
     Active Substance: DIETARY SUPPLEMENT
     Indication: PRODUCT USED FOR UNKNOWN INDICATION
     Dosage: 1-1-1
     Route: 065

REACTIONS (6)
  - Hallucinations, mixed [Recovering/Resolving]
  - Drug abuse [Recovered/Resolved]
  - Psychotic disorder [Recovering/Resolving]
  - Anxiety [Recovering/Resolving]
  - Drug dependence [Unknown]
  - Depression [Unknown]

NARRATIVE: CASE EVENT DATE: 2016
